FAERS Safety Report 6928292-5 (Version None)
Quarter: 2010Q3

REPORT INFORMATION
  Report Type: 
  Country: None (occurrence: None)
  Receive Date: 20100810
  Receipt Date: 20100727
  Transmission Date: 20110219
  Serious: Yes (Life-Threatening, Disabling, Other)
  Sender: FDA-Public Use
  Company Number: ACO_01589_2010

PATIENT
  Age: 68 Year
  Sex: Female
  Weight: 74.8435 kg

DRUGS (6)
  1. AMPYRA [Suspect]
     Indication: BALANCE DISORDER
     Dosage: 10 MG BID ORAL
     Route: 048
     Dates: start: 20100601, end: 20100720
  2. AMPYRA [Suspect]
     Indication: GAIT DISTURBANCE
     Dosage: 10 MG BID ORAL
     Route: 048
     Dates: start: 20100601, end: 20100720
  3. BACLOFEN [Concomitant]
  4. SOLU-MEDROL [Concomitant]
  5. LIPITOR [Concomitant]
  6. VITAMIN TAB [Concomitant]

REACTIONS (6)
  - BEDRIDDEN [None]
  - CONDITION AGGRAVATED [None]
  - DEPRESSION [None]
  - GAIT DISTURBANCE [None]
  - NAUSEA [None]
  - SUICIDAL IDEATION [None]
